FAERS Safety Report 9734981 (Version 1)
Quarter: 2013Q4

REPORT INFORMATION
  Report Type: Spontaneous
  Country: US (occurrence: US)
  Receive Date: 20131206
  Receipt Date: 20131206
  Transmission Date: 20140711
  Serious: No
  Sender: FDA-Public Use
  Company Number: US-PFIZER INC-2013348105

PATIENT
  Age: 42 Year
  Sex: Male
  Weight: 113.38 kg

DRUGS (4)
  1. LYRICA [Suspect]
     Indication: NEUROPATHY PERIPHERAL
     Dosage: 75 MG, 2X/DAY
     Route: 048
     Dates: start: 20131203
  2. LYRICA [Suspect]
     Indication: NERVE INJURY
  3. GABAPENTIN [Concomitant]
     Indication: NEUROPATHY PERIPHERAL
     Dosage: 1200 MG (BY TAKING 2 ORAL TABLETS OF 600MG), 3X/DAY
     Route: 048
     Dates: end: 20131202
  4. GABAPENTIN [Concomitant]
     Indication: NERVE INJURY

REACTIONS (2)
  - Off label use [Unknown]
  - Pruritus [Recovered/Resolved]
